FAERS Safety Report 12952578 (Version 1)
Quarter: 2016Q4

REPORT INFORMATION
  Report Type: Spontaneous
  Country: US (occurrence: US)
  Receive Date: 20161117
  Receipt Date: 20161117
  Transmission Date: 20170207
  Serious: No
  Sender: FDA-Public Use
  Company Number: US-SA-2016SA186234

PATIENT
  Age: 78 Year
  Sex: Female

DRUGS (2)
  1. SOLOSTAR [Concomitant]
     Active Substance: DEVICE
     Indication: TYPE 2 DIABETES MELLITUS
     Dates: start: 20160929, end: 20161002
  2. TOUJEO [Suspect]
     Active Substance: INSULIN GLARGINE
     Indication: TYPE 2 DIABETES MELLITUS
     Dosage: 76-78 UNITS
     Route: 065
     Dates: start: 20160929, end: 20161002

REACTIONS (6)
  - Eye irritation [Unknown]
  - Dyspnoea [Recovered/Resolved]
  - Rhinorrhoea [Unknown]
  - Pruritus [Recovered/Resolved]
  - Hyperhidrosis [Recovered/Resolved]
  - Hot flush [Recovered/Resolved]

NARRATIVE: CASE EVENT DATE: 20161002
